FAERS Safety Report 17836937 (Version 1)
Quarter: 2020Q2

REPORT INFORMATION
  Report Type: Spontaneous
  Country: JP (occurrence: JP)
  Receive Date: 20200528
  Receipt Date: 20200528
  Transmission Date: 20200714
  Serious: Yes (Other)
  Sender: FDA-Public Use
  Company Number: JP-NAPPMUNDI-GBR-2020-0076910

PATIENT
  Age: 63 Year
  Sex: Female

DRUGS (2)
  1. OXIFAST [Suspect]
     Active Substance: OXYCODONE
     Indication: BACK PAIN
     Dosage: 10 MG, DAILY
     Route: 041
  2. OXIFAST [Suspect]
     Active Substance: OXYCODONE
     Indication: ABDOMINAL PAIN

REACTIONS (1)
  - Delirium [Not Recovered/Not Resolved]
